FAERS Safety Report 5706499-2 (Version None)
Quarter: 2008Q2

REPORT INFORMATION
  Report Type: 
  Country: None (occurrence: None)
  Receive Date: 20080414
  Receipt Date: 20080327
  Transmission Date: 20081010
  Serious: No
  Sender: FDA-Public Use
  Company Number: 002#2#2008-00155

PATIENT
  Age: 77 Year
  Sex: Female

DRUGS (7)
  1. NEUPRO [Suspect]
     Indication: PARKINSON'S DISEASE
     Dosage: 6MG/24H,1 IN 1 D,TRANSDERMAL;4MG/24H,1 IN 1 D,TRANSDERMAL
     Route: 062
     Dates: start: 20080319, end: 20080326
  2. STALEVO 100 [Concomitant]
  3. DITROPAN [Concomitant]
  4. SYNTHROID [Concomitant]
  5. MIRAPEX [Concomitant]
  6. APIDRA [Concomitant]
  7. EXELON [Concomitant]

REACTIONS (2)
  - FREEZING PHENOMENON [None]
  - MOBILITY DECREASED [None]
